FAERS Safety Report 23961980 (Version 1)
Quarter: 2024Q2

REPORT INFORMATION
  Report Type: Spontaneous
  Country: US (occurrence: None)
  Receive Date: 20240610
  Receipt Date: 20240610
  Transmission Date: 20240716
  Serious: Yes (Hospitalization)
  Sender: FDA-Public Use
  Company Number: None

PATIENT
  Age: 4 Year
  Sex: Female

DRUGS (1)
  1. VIGABATRIN [Suspect]
     Active Substance: VIGABATRIN
     Indication: Epilepsy
     Dosage: 600MG AM 700MG PM TWICE DAILY ORAL? ?
     Route: 048
     Dates: start: 20230314

REACTIONS (2)
  - Seizure [None]
  - Urinary tract infection [None]

NARRATIVE: CASE EVENT DATE: 20240602
